FAERS Safety Report 21892355 (Version 1)
Quarter: 2023Q1

REPORT INFORMATION
  Report Type: Spontaneous
  Country: NL (occurrence: NL)
  Receive Date: 20230120
  Receipt Date: 20230120
  Transmission Date: 20230418
  Serious: No
  Sender: FDA-Public Use
  Company Number: NL-JAZZ-2022-NL-036660

PATIENT
  Sex: Male

DRUGS (1)
  1. XYREM [Suspect]
     Active Substance: SODIUM OXYBATE
     Indication: Product used for unknown indication
     Dosage: 3.75 GRAM, BID
     Dates: start: 20221010, end: 20221116

REACTIONS (4)
  - Abdominal discomfort [Recovered/Resolved]
  - Flank pain [Recovered/Resolved]
  - Product taste abnormal [Unknown]
  - Off label use [Unknown]
